FAERS Safety Report 14570390 (Version 2)
Quarter: 2018Q1

REPORT INFORMATION
  Report Type: Spontaneous
  Country: US (occurrence: US)
  Receive Date: 20180226
  Receipt Date: 20180307
  Transmission Date: 20180509
  Serious: Yes (Hospitalization, Other)
  Sender: FDA-Public Use
  Company Number: US-TAKEDA-2018TUS004644

PATIENT
  Age: 59 Year
  Sex: Female
  Weight: 88.44 kg

DRUGS (1)
  1. TRINTELLIX [Suspect]
     Active Substance: VORTIOXETINE HYDROBROMIDE
     Indication: MAJOR DEPRESSION
     Dosage: 10 MG, QD
     Route: 048
     Dates: start: 20171022, end: 20171116

REACTIONS (6)
  - Anger [Not Recovered/Not Resolved]
  - Toxicity to various agents [Unknown]
  - Bipolar disorder [Unknown]
  - Mania [Not Recovered/Not Resolved]
  - Hallucination, auditory [Unknown]
  - Pyromania [Unknown]

NARRATIVE: CASE EVENT DATE: 2017
